FAERS Safety Report 5989763-1 (Version None)
Quarter: 2008Q4

REPORT INFORMATION
  Report Type: 
  Country: None (occurrence: None)
  Receive Date: 20081209
  Receipt Date: 20081124
  Transmission Date: 20090506
  Serious: Yes (Death, Life-Threatening, Hospitalization, Other)
  Sender: FDA-Public Use
  Company Number: 2008S1020338

PATIENT
  Age: 63 Year
  Sex: Female

DRUGS (5)
  1. WARFARIN SODIUM [Suspect]
     Indication: DEEP VEIN THROMBOSIS
  2. TEMSIROLIMUS (TERSIROLIMUS) [Suspect]
     Dosage: INTRAVENOUS
     Route: 042
     Dates: start: 20081016
  3. DOMPERIDONE (DOMPERIDONE) [Concomitant]
  4. MORPHINE SULFATE [Concomitant]
  5. ORAMORPH SR [Concomitant]

REACTIONS (5)
  - BLOOD PRESSURE DECREASED [None]
  - HEART RATE INCREASED [None]
  - INTERNATIONAL NORMALISED RATIO INCREASED [None]
  - SEPSIS [None]
  - SUBDURAL HAEMORRHAGE [None]
